FAERS Safety Report 8055832-8 (Version None)
Quarter: 2011Q4

REPORT INFORMATION
  Report Type: 
  Country: None (occurrence: None)
  Receive Date: 20111216
  Receipt Date: 20110524
  Transmission Date: 20120403
  Serious: Yes (Other)
  Sender: FDA-Public Use
  Company Number: 250538USA

PATIENT
  Age: 36 Year
  Sex: Female

DRUGS (2)
  1. EFFIXAR [Concomitant]
  2. PARAGARD T 380A [Suspect]
     Indication: CONTRACEPTION
     Dosage: I.U.
     Dates: end: 20100929

REACTIONS (4)
  - DEVICE DISLOCATION [None]
  - MEDICAL DEVICE COMPLICATION [None]
  - DYSMENORRHOEA [None]
  - VAGINAL HAEMORRHAGE [None]
